FAERS Safety Report 5773214-6 (Version None)
Quarter: 2008Q2

REPORT INFORMATION
  Report Type: 
  Country: None (occurrence: None)
  Receive Date: 20080613
  Receipt Date: 20080613
  Transmission Date: 20081010
  Serious: Yes (Life-Threatening, Hospitalization)
  Sender: FDA-Public Use
  Company Number: None

PATIENT
  Age: 18 Year
  Weight: 60 kg

DRUGS (3)
  1. FERROUS SULFATE TAB [Suspect]
     Indication: ANAEMIA
     Dosage: 16,250 MG ACUTE ON CHRONIC PO
     Route: 048
  2. FERROUS SULFATE TAB [Suspect]
     Indication: SUICIDE ATTEMPT
     Dosage: 16,250 MG ACUTE ON CHRONIC PO
     Route: 048
  3. MOTRIN [Suspect]
     Indication: SUICIDE ATTEMPT
     Dosage: 16 GRAMS ACUTE PO
     Route: 048

REACTIONS (3)
  - COAGULOPATHY [None]
  - HEPATOTOXICITY [None]
  - INCORRECT DOSE ADMINISTERED [None]
